FAERS Safety Report 23498800 (Version 1)
Quarter: 2024Q1

REPORT INFORMATION
  Report Type: Spontaneous
  Country: US (occurrence: None)
  Receive Date: 20240208
  Receipt Date: 20240208
  Transmission Date: 20240410
  Serious: No
  Sender: FDA-Public Use
  Company Number: None

PATIENT
  Age: 57 Year
  Sex: Female

DRUGS (1)
  1. ICATIBANT [Suspect]
     Active Substance: ICATIBANT ACETATE
     Indication: Immunodeficiency
     Dosage: OTHER FREQUENCY : PRN;?
     Route: 058

REACTIONS (3)
  - Injection site pain [None]
  - Injection site pain [None]
  - Injection site bruising [None]
